FAERS Safety Report 16167967 (Version 1)
Quarter: 2019Q2

REPORT INFORMATION
  Report Type: Spontaneous
  Country: US (occurrence: US)
  Receive Date: 20190408
  Receipt Date: 20190408
  Transmission Date: 20190711
  Serious: No
  Sender: FDA-Public Use
  Company Number: US-GLAXOSMITHKLINE-US2019057248

PATIENT
  Age: 64 Year
  Sex: Female

DRUGS (2)
  1. ABREVA [Suspect]
     Active Substance: DOCOSANOL
     Dosage: UNK
     Route: 061
     Dates: start: 20190328
  2. ABREVA [Suspect]
     Active Substance: DOCOSANOL
     Indication: ORAL HERPES
     Dosage: I APPLY IT 5 TIMES A DAY
     Route: 061
     Dates: start: 20190226, end: 201903

REACTIONS (3)
  - Condition aggravated [Unknown]
  - Incorrect product administration duration [Unknown]
  - Oral herpes [Unknown]

NARRATIVE: CASE EVENT DATE: 20190329
